FAERS Safety Report 18948255 (Version 1)
Quarter: 2021Q1

REPORT INFORMATION
  Report Type: Spontaneous
  Country: ES (occurrence: ES)
  Receive Date: 20210226
  Receipt Date: 20210226
  Transmission Date: 20210420
  Serious: No
  Sender: FDA-Public Use
  Company Number: ES-LUPIN PHARMACEUTICALS INC.-2021-02180

PATIENT
  Age: 1 Month

DRUGS (2)
  1. NIACIN. [Suspect]
     Active Substance: NIACIN
     Indication: METABOLIC DISORDER
     Dosage: UNK
     Route: 065
  2. NIACIN. [Suspect]
     Active Substance: NIACIN
     Indication: MULTIPLE CONGENITAL ABNORMALITIES

REACTIONS (1)
  - Off label use [Unknown]
